FAERS Safety Report 7311413-2 (Version None)
Quarter: 2011Q1

REPORT INFORMATION
  Report Type: 
  Country: None (occurrence: None)
  Receive Date: 20110224
  Receipt Date: 20110217
  Transmission Date: 20110831
  Serious: Yes (Hospitalization, Other)
  Sender: FDA-Public Use
  Company Number: CH-PFIZER INC-2011034952

PATIENT
  Age: 27 Year
  Sex: Female

DRUGS (6)
  1. EFFEXOR [Suspect]
     Dosage: 75 MG, 1X/DAY
     Route: 048
     Dates: start: 20100901, end: 20101019
  2. EFFEXOR [Suspect]
     Dosage: 150 MG, 1X/DAY
     Route: 048
     Dates: start: 20100824, end: 20100901
  3. YAZ [Concomitant]
  4. DAFALGAN [Concomitant]
     Dosage: UNK
     Dates: start: 20101014, end: 20101017
  5. SPEDIFEN [Concomitant]
     Dosage: UNK
     Dates: start: 20101014, end: 20101017
  6. EFFEXOR [Suspect]
     Dosage: 75 MG, 1X/DAY
     Route: 048
     Dates: start: 20100611, end: 20100823

REACTIONS (8)
  - HEPATOCELLULAR INJURY [None]
  - ABDOMINAL PAIN [None]
  - HAEMATOMA [None]
  - THROMBOCYTOPENIA [None]
  - EPISTAXIS [None]
  - VOMITING [None]
  - URINE ANALYSIS ABNORMAL [None]
  - PYREXIA [None]
